FAERS Safety Report 4802588-5 (Version None)
Quarter: 2005Q4

REPORT INFORMATION
  Report Type: 
  Country: None (occurrence: None)
  Receive Date: 20051011
  Receipt Date: 20050930
  Transmission Date: 20060501
  Serious: Yes (Hospitalization)
  Sender: FDA-Public Use
  Company Number: 218280

PATIENT
  Age: 80 Year
  Sex: Male

DRUGS (2)
  1. RITUXAN [Suspect]
     Indication: NON-HODGKIN'S LYMPHOMA
  2. ANTIDEPRESSANT [Concomitant]

REACTIONS (5)
  - DEPRESSION [None]
  - DIVERTICULITIS [None]
  - DYSPHAGIA [None]
  - INFECTION [None]
  - PNEUMONIA STAPHYLOCOCCAL [None]
